FAERS Safety Report 8249359-8 (Version None)
Quarter: 2012Q2

REPORT INFORMATION
  Report Type: 
  Country: None (occurrence: None)
  Receive Date: 20120402
  Receipt Date: 20120319
  Transmission Date: 20120825
  Serious: Yes (Hospitalization)
  Sender: FDA-Public Use
  Company Number: FR-CELGENEUS-056-21880-12032179

PATIENT
  Sex: Male

DRUGS (8)
  1. DEXAMETHASONE [Suspect]
     Route: 065
     Dates: end: 20120217
  2. ZITHROMAX [Concomitant]
     Indication: ANTI-INFECTIVE THERAPY
     Route: 048
     Dates: start: 20120228
  3. BORTEZOMIB [Suspect]
     Route: 065
     Dates: end: 20120216
  4. AUGMENTIN '125' [Concomitant]
     Indication: ANTI-INFECTIVE THERAPY
     Dosage: 3 GRAM
     Route: 048
     Dates: start: 20120228
  5. REVLIMID [Suspect]
     Route: 048
     Dates: start: 20110809
  6. DEXAMETHASONE [Suspect]
     Route: 065
     Dates: start: 20110809
  7. REVLIMID [Suspect]
     Route: 048
     Dates: end: 20120209
  8. BORTEZOMIB [Suspect]
     Route: 065
     Dates: start: 20110809

REACTIONS (2)
  - PYREXIA [None]
  - SYSTEMIC INFLAMMATORY RESPONSE SYNDROME [None]
